FAERS Safety Report 20493100 (Version 1)
Quarter: 2022Q1

REPORT INFORMATION
  Report Type: Spontaneous
  Country: US (occurrence: None)
  Receive Date: 20220220
  Receipt Date: 20220220
  Transmission Date: 20220423
  Serious: No
  Sender: FDA-Public Use
  Company Number: 2022A069779

PATIENT
  Sex: Female

DRUGS (1)
  1. FASLODEX [Suspect]
     Active Substance: FULVESTRANT
     Indication: Breast cancer metastatic
     Route: 030

REACTIONS (5)
  - Sciatica [Unknown]
  - Insomnia [Unknown]
  - Injection site haemorrhage [Unknown]
  - Pain in extremity [Unknown]
  - Wrong technique in product usage process [Unknown]
